FAERS Safety Report 6442810-5 (Version None)
Quarter: 2009Q4

REPORT INFORMATION
  Report Type: 
  Country: None (occurrence: None)
  Receive Date: 20091112
  Receipt Date: 20091105
  Transmission Date: 20100525
  Serious: Yes (Death, Hospitalization, Other)
  Sender: FDA-Public Use
  Company Number: 2009SP028255

PATIENT
  Age: 66 Year
  Sex: Female

DRUGS (6)
  1. TEMODAL [Suspect]
     Indication: DRUG USE FOR UNKNOWN INDICATION
  2. VALPROATE SODIUM [Concomitant]
  3. FORTECORTIN [Concomitant]
  4. NEXIUM [Concomitant]
  5. BELOK ZOK [Concomitant]
  6. BOSWELLIA [Concomitant]

REACTIONS (1)
  - STATUS EPILEPTICUS [None]
